FAERS Safety Report 5962843 (Version 2)
Quarter: 2017Q1

REPORT INFORMATION
  Report Type: Report from Study
  Country: JP (occurrence: JP)
  Receive Date: 20060118
  Receipt Date: 20170206
  Transmission Date: 20170429
  Serious: Yes (Death, Life-Threatening, Other)
  Sender: FDA-Public Use
  Company Number: JP-BRISTOL-MYERS SQUIBB COMPANY-13248935

PATIENT
  Age: 17 Year
  Sex: Male

DRUGS (12)
  1. EPIVIR [Suspect]
     Active Substance: LAMIVUDINE
     Indication: HIV INFECTION
     Dosage: THERAPY STOPPED ON 22-FEB-1998 AND RESTARTED 20-MAR-1998.
     Route: 048
     Dates: start: 19971101, end: 20050208
  2. MEROPEN [Concomitant]
     Active Substance: MEROPENEM
     Indication: PRODUCT USED FOR UNKNOWN INDICATION
     Dosage: UNK
     Route: 065
     Dates: start: 20050128, end: 20050209
  3. DIDANOSINE. [Suspect]
     Active Substance: DIDANOSINE
     Indication: PRODUCT USED FOR UNKNOWN INDICATION
     Dosage: UNK
     Route: 048
     Dates: start: 19980223, end: 19980308
  4. VANCOMYCIN [Concomitant]
     Active Substance: VANCOMYCIN
     Indication: PRODUCT USED FOR UNKNOWN INDICATION
     Dosage: UNK
     Route: 065
     Dates: start: 20050201, end: 20050214
  5. STAVUDINE. [Suspect]
     Active Substance: STAVUDINE
     Indication: HIV INFECTION
     Dosage: UNK
     Route: 065
     Dates: start: 19980223, end: 20040922
  6. VIREAD [Concomitant]
     Active Substance: TENOFOVIR DISOPROXIL FUMARATE
     Indication: PRODUCT USED FOR UNKNOWN INDICATION
     Dosage: UNK
     Route: 048
     Dates: start: 20040923, end: 20050208
  7. FORTOVASE [Suspect]
     Active Substance: SAQUINAVIR
     Indication: HIV INFECTION
     Dosage: UNK
     Route: 048
     Dates: start: 20000620, end: 20050111
  8. INVIRASE [Concomitant]
     Active Substance: SAQUINAVIR MESYLATE
     Indication: PRODUCT USED FOR UNKNOWN INDICATION
     Dosage: UNK
     Route: 048
     Dates: start: 19980320
  9. RECOMBINATE [Concomitant]
     Active Substance: ANTIHEMOPHILIC FACTOR, HUMAN RECOMBINANT
     Indication: PRODUCT USED FOR UNKNOWN INDICATION
     Dosage: THERAPY STOPPED ON 31-OCT-1998 AND RESTARTED ON 01-NOV-1998
     Route: 041
     Dates: start: 19980413, end: 20050219
  10. KALETRA [Concomitant]
     Active Substance: LOPINAVIR\RITONAVIR
     Indication: PRODUCT USED FOR UNKNOWN INDICATION
     Dosage: UNK
     Route: 048
     Dates: start: 20050112, end: 20050208
  11. NORVIR [Suspect]
     Active Substance: RITONAVIR
     Indication: HIV INFECTION
     Dosage: DOSE VALUE: 800-1200 MG PER DAY; THERAPY STOPPED ON 08-MAR-1998 AND RESTARTED 20-MAR-1998.
     Route: 048
     Dates: start: 19980304, end: 20050111
  12. GLYCYRON [Concomitant]
     Active Substance: AMMONIUM GLYCYRRHIZATE\GLYCINE\METHIONINE
     Indication: PRODUCT USED FOR UNKNOWN INDICATION
     Dosage: UNK
     Route: 048
     Dates: start: 19971101

REACTIONS (7)
  - Shock haemorrhagic [Recovered/Resolved]
  - Neuropathy peripheral [Recovering/Resolving]
  - Hepatic failure [Unknown]
  - Death [Fatal]
  - Cerebral haemorrhage [Unknown]
  - Hepatic cirrhosis [Unknown]
  - Pyrexia [Recovering/Resolving]

NARRATIVE: CASE EVENT DATE: 19980306
